FAERS Safety Report 8422870-2 (Version None)
Quarter: 2012Q2

REPORT INFORMATION
  Report Type: 
  Country: None (occurrence: None)
  Receive Date: 20120608
  Receipt Date: 20120531
  Transmission Date: 20120825
  Serious: Yes (Hospitalization)
  Sender: FDA-Public Use
  Company Number: US-GLAXOSMITHKLINE-A0887131A

PATIENT
  Age: 52 Year
  Sex: Male
  Weight: 92.3 kg

DRUGS (1)
  1. AVANDIA [Suspect]
     Indication: TYPE 2 DIABETES MELLITUS
     Dosage: 4MG PER DAY
     Route: 048
     Dates: start: 20030607, end: 20070620

REACTIONS (3)
  - ISCHAEMIC CARDIOMYOPATHY [None]
  - IMPLANTABLE DEFIBRILLATOR INSERTION [None]
  - CARDIAC FAILURE CONGESTIVE [None]
